FAERS Safety Report 9720386 (Version 1)
Quarter: 2013Q4

REPORT INFORMATION
  Report Type: Report from Study
  Country: US (occurrence: US)
  Receive Date: 20131129
  Receipt Date: 20131129
  Transmission Date: 20140711
  Serious: Yes (Other)
  Sender: FDA-Public Use
  Company Number: US-JNJFOC-20131115174

PATIENT
  Sex: Female

DRUGS (2)
  1. TYLENOL UNSPECIFIED [Suspect]
     Route: 065
  2. TYLENOL UNSPECIFIED [Suspect]
     Indication: PRODUCT USED FOR UNKNOWN INDICATION
     Route: 065

REACTIONS (2)
  - Liver injury [Unknown]
  - Overdose [Unknown]
